FAERS Safety Report 9178166 (Version 1)
Quarter: 2013Q1

REPORT INFORMATION
  Report Type: Spontaneous
  Country: ES (occurrence: ES)
  Receive Date: 20130321
  Receipt Date: 20130321
  Transmission Date: 20140127
  Serious: Yes (Hospitalization)
  Sender: FDA-Public Use
  Company Number: ES-OTSUKA-EU-2013-10058

PATIENT
  Age: 68 Year
  Sex: Male

DRUGS (3)
  1. EKISTOL [Suspect]
     Indication: INTERMITTENT CLAUDICATION
     Dosage: 200 MG MILLIGRAM(S), DAILY DOSE
     Route: 048
     Dates: start: 20091103
  2. CLOPIDOGREL [Concomitant]
     Dosage: 75 MG MILLIGRAM(S), DAILY DOSE
     Route: 065
     Dates: start: 20100426
  3. ALOPURINOL [Concomitant]
     Dosage: 100 MG MILLIGRAM(S), DAILY DOSE
     Route: 065
     Dates: start: 20100816

REACTIONS (8)
  - Chronic obstructive pulmonary disease [Unknown]
  - Constipation [Unknown]
  - Gastric polyps [Recovered/Resolved]
  - Abdominal distension [Unknown]
  - Cardiac failure congestive [Unknown]
  - Septic shock [Unknown]
  - Campylobacter gastroenteritis [Unknown]
  - Renal failure acute [Recovered/Resolved]
